FAERS Safety Report 14848165 (Version 4)
Quarter: 2018Q2

REPORT INFORMATION
  Report Type: Spontaneous
  Country: US (occurrence: US)
  Receive Date: 20180504
  Receipt Date: 20180523
  Transmission Date: 20180711
  Serious: Yes (Other)
  Sender: FDA-Public Use
  Company Number: US-SAOL THERAPEUTICS-2018SAO00654

PATIENT
  Sex: Male

DRUGS (2)
  1. BACLOFEN. [Suspect]
     Active Substance: BACLOFEN
     Route: 037
  2. UNSPECIFIED NARCOTICS [Concomitant]
     Active Substance: UNSPECIFIED INGREDIENT
     Route: 048

REACTIONS (5)
  - Drug dose omission [Unknown]
  - Mobility decreased [Recovered/Resolved]
  - Multiple sclerosis [Unknown]
  - Pain [Unknown]
  - Weight increased [Unknown]

NARRATIVE: CASE EVENT DATE: 2016
